FAERS Safety Report 9557626 (Version 1)
Quarter: 2013Q3

REPORT INFORMATION
  Report Type: Spontaneous
  Country: FR (occurrence: FR)
  Receive Date: 20130926
  Receipt Date: 20130926
  Transmission Date: 20140515
  Serious: Yes (Hospitalization)
  Sender: FDA-Public Use
  Company Number: FR-GLAXOSMITHKLINE-B0923656A

PATIENT
  Age: 79 Year
  Sex: Female

DRUGS (10)
  1. LAMICTAL [Suspect]
     Indication: LOSS OF CONSCIOUSNESS
     Route: 048
     Dates: start: 201210, end: 20130807
  2. NIDREL [Concomitant]
     Indication: HYPERTENSION
     Dosage: 10MG TWICE PER DAY
     Route: 048
     Dates: start: 201305
  3. LASILIX FAIBLE [Concomitant]
     Indication: HYPERTENSION
     Dosage: 20MG PER DAY
     Route: 048
  4. SERESTA [Concomitant]
     Indication: ANXIETY
     Dosage: 1UNIT PER DAY
     Route: 048
  5. PERINDOPRIL [Concomitant]
     Indication: HYPERTENSION
     Dosage: 4MG PER DAY
     Route: 048
  6. LEVOTHYROX [Concomitant]
     Indication: HYPOTHYROIDISM
     Dosage: 150MCG PER DAY
     Route: 048
  7. CELLUVISC [Concomitant]
     Indication: GLAUCOMA
     Route: 047
  8. VISMED [Concomitant]
     Route: 065
  9. LUMIGAN [Concomitant]
     Indication: GLAUCOMA
     Route: 047
  10. PRESERVISION [Concomitant]
     Indication: GLAUCOMA
     Route: 065

REACTIONS (13)
  - Systemic lupus erythematosus [Recovering/Resolving]
  - Rash pruritic [Recovering/Resolving]
  - Skin necrosis [Recovering/Resolving]
  - Rash erythematous [Recovering/Resolving]
  - Hypoproteinaemia [Unknown]
  - Hypoalbuminaemia [Unknown]
  - Normochromic normocytic anaemia [Unknown]
  - Leukopenia [Unknown]
  - Neutropenia [Unknown]
  - Lymphopenia [Unknown]
  - Polyuria [Unknown]
  - Proteinuria [Unknown]
  - Off label use [Unknown]
